FAERS Safety Report 9693487 (Version 1)
Quarter: 2013Q4

REPORT INFORMATION
  Report Type: Spontaneous
  Country: US (occurrence: US)
  Receive Date: 20131118
  Receipt Date: 20131118
  Transmission Date: 20140711
  Serious: Yes (Hospitalization)
  Sender: FDA-Public Use
  Company Number: US-BAYER-2013-140292

PATIENT
  Age: 47 Year
  Sex: Female
  Weight: 74.24 kg

DRUGS (3)
  1. YAZ [Suspect]
     Route: 048
  2. RELPAX [Concomitant]
     Indication: HEADACHE
     Dosage: UNK
     Route: 048
  3. MECLIZINE [Concomitant]
     Indication: VERTIGO
     Dosage: 25 MG, AS DAILY NEEDED
     Route: 048

REACTIONS (2)
  - Pulmonary embolism [None]
  - Deep vein thrombosis [None]
